FAERS Safety Report 21266830 (Version 1)
Quarter: 2022Q3

REPORT INFORMATION
  Report Type: Report from Study
  Country: GB (occurrence: GB)
  Receive Date: 20220829
  Receipt Date: 20220829
  Transmission Date: 20221026
  Serious: Yes (Hospitalization, Other)
  Sender: FDA-Public Use
  Company Number: None

PATIENT
  Age: 79 Year
  Sex: Female

DRUGS (3)
  1. METHOTREXATE [Suspect]
     Active Substance: METHOTREXATE
     Indication: Product used for unknown indication
     Dosage: UNK UNK, UNKNOWN
     Route: 065
  2. CALCIUM CARBONATE [Suspect]
     Active Substance: CALCIUM CARBONATE
     Indication: Product used for unknown indication
     Dosage: 245 DOSAGE FORM
     Route: 065
  3. BARICITINIB [Suspect]
     Active Substance: BARICITINIB
     Indication: Rheumatoid arthritis
     Dosage: 2 MG, DAILY
     Route: 048

REACTIONS (9)
  - Abdominal discomfort [Unknown]
  - Mouth ulceration [Unknown]
  - Blood calcium increased [Unknown]
  - Drug ineffective [Unknown]
  - Escherichia infection [Unknown]
  - Mobility decreased [Unknown]
  - Nephritis bacterial [Unknown]
  - Gastrointestinal disorder [Unknown]
  - Kidney infection [Unknown]
